FAERS Safety Report 4536392-2 (Version None)
Quarter: 2004Q4

REPORT INFORMATION
  Report Type: 
  Country: None (occurrence: None)
  Receive Date: 20041223
  Receipt Date: 20040917
  Transmission Date: 20050328
  Serious: No
  Sender: FDA-Public Use
  Company Number: US-GLAXOSMITHKLINE-A0526186A

PATIENT
  Age: 44 Year
  Sex: Female

DRUGS (2)
  1. FLONASE [Suspect]
     Route: 045
     Dates: start: 20040915
  2. BIRTH CONTROL PILL [Concomitant]

REACTIONS (2)
  - ERYTHEMA [None]
  - PRURITUS GENERALISED [None]
